FAERS Safety Report 12918481 (Version 3)
Quarter: 2016Q4

REPORT INFORMATION
  Report Type: Spontaneous
  Country: US (occurrence: US)
  Receive Date: 20161107
  Receipt Date: 20161129
  Transmission Date: 20170207
  Serious: No
  Sender: FDA-Public Use
  Company Number: US-INSYS THERAPEUTICS, INC-INS201611-000675

PATIENT
  Sex: Female

DRUGS (6)
  1. TYLENOL [Concomitant]
     Active Substance: ACETAMINOPHEN
     Indication: BREAKTHROUGH PAIN
  2. MS CONTIN [Concomitant]
     Active Substance: MORPHINE SULFATE
  3. HYDROCODONE [Concomitant]
     Active Substance: HYDROCODONE
     Indication: BREAKTHROUGH PAIN
  4. MS CONTIN [Concomitant]
     Active Substance: MORPHINE SULFATE
  5. DILAUDID [Concomitant]
     Active Substance: HYDROMORPHONE HYDROCHLORIDE
  6. SUBSYS [Suspect]
     Active Substance: FENTANYL
     Indication: BREAKTHROUGH PAIN
     Route: 060

REACTIONS (2)
  - Tooth fracture [Unknown]
  - Drug ineffective [Unknown]
